FAERS Safety Report 13141071 (Version 1)
Quarter: 2017Q1

REPORT INFORMATION
  Report Type: Spontaneous
  Country: US (occurrence: US)
  Receive Date: 20170120
  Receipt Date: 20170120
  Transmission Date: 20170428
  Serious: No
  Sender: FDA-Public Use
  Company Number: None

PATIENT
  Age: 42 Year
  Sex: Female
  Weight: 76.95 kg

DRUGS (1)
  1. CHG WIPES [Suspect]
     Active Substance: CHLORHEXIDINE GLUCONATE
     Indication: PREOPERATIVE CARE
     Dates: start: 20170115, end: 20170116

REACTIONS (4)
  - Urticaria [None]
  - Application site reaction [None]
  - Application site pruritus [None]
  - Application site inflammation [None]

NARRATIVE: CASE EVENT DATE: 20170118
